FAERS Safety Report 7617009-7 (Version None)
Quarter: 2011Q3

REPORT INFORMATION
  Report Type: 
  Country: None (occurrence: None)
  Receive Date: 20110718
  Receipt Date: 20110708
  Transmission Date: 20111222
  Serious: Yes (Death, Hospitalization)
  Sender: FDA-Public Use
  Company Number: JP-BRISTOL-MYERS SQUIBB COMPANY-15898984

PATIENT
  Age: 21 Year
  Sex: Male

DRUGS (1)
  1. VEPESID [Suspect]
     Indication: ACUTE LYMPHOCYTIC LEUKAEMIA

REACTIONS (2)
  - ACUTE GRAFT VERSUS HOST DISEASE [None]
  - TONGUE NEOPLASM MALIGNANT STAGE UNSPECIFIED [None]
